FAERS Safety Report 25926391 (Version 1)
Quarter: 2025Q4

REPORT INFORMATION
  Report Type: Spontaneous
  Country: US (occurrence: None)
  Receive Date: 20251014
  Receipt Date: 20251014
  Transmission Date: 20260118
  Serious: Yes (Life-Threatening, Hospitalization)
  Sender: FDA-CTU
  Company Number: None

PATIENT
  Age: 6 Week
  Sex: Male
  Weight: 5.14 kg

DRUGS (1)
  1. BEYFORTUS [Suspect]
     Active Substance: NIRSEVIMAB-ALIP
     Indication: Antiviral prophylaxis
     Dosage: OTHER FREQUENCY : ONCE;?
     Route: 030
     Dates: start: 20251003, end: 20251003

REACTIONS (8)
  - Haematemesis [None]
  - Cardiac arrest [None]
  - General physical health deterioration [None]
  - Dialysis [None]
  - Multiple organ dysfunction syndrome [None]
  - Acute respiratory distress syndrome [None]
  - Renal failure [None]
  - Generalised oedema [None]

NARRATIVE: CASE EVENT DATE: 20251003
